FAERS Safety Report 23760680 (Version 1)
Quarter: 2024Q2

REPORT INFORMATION
  Report Type: Spontaneous
  Country: US (occurrence: US)
  Receive Date: 20240419
  Receipt Date: 20240419
  Transmission Date: 20240716
  Serious: Yes (Hospitalization)
  Sender: FDA-Public Use
  Company Number: US-SA-SAC20240418000014

PATIENT
  Age: 43 Year
  Sex: Male

DRUGS (1)
  1. LUMIZYME [Suspect]
     Active Substance: ALGLUCOSIDASE ALFA
     Indication: Glycogen storage disease type II
     Dosage: 1300 MG, QOW
     Route: 042
     Dates: start: 201708

REACTIONS (5)
  - Glycogen storage disease type II [Unknown]
  - Condition aggravated [Unknown]
  - Heart rate increased [Unknown]
  - Nasopharyngitis [Unknown]
  - Respiratory disorder [Unknown]
